FAERS Safety Report 19571307 (Version 5)
Quarter: 2025Q1

REPORT INFORMATION
  Report Type: Report from Study
  Country: US (occurrence: US)
  Receive Date: 20210716
  Receipt Date: 20250127
  Transmission Date: 20250408
  Serious: Yes (Hospitalization, Other)
  Sender: TAKEDA
  Company Number: US-TAKEDA-US202031427

PATIENT
  Age: 65 Year
  Sex: Female

DRUGS (2)
  1. HUMAN IMMUNOGLOBULIN G\HYALURONIDASE RECOMBINANT HUMAN [Suspect]
     Active Substance: HUMAN IMMUNOGLOBULIN G\HYALURONIDASE (HUMAN RECOMBINANT)
     Indication: Primary immunodeficiency syndrome
  2. HUMAN IMMUNOGLOBULIN G\HYALURONIDASE RECOMBINANT HUMAN [Suspect]
     Active Substance: HUMAN IMMUNOGLOBULIN G\HYALURONIDASE (HUMAN RECOMBINANT)
     Indication: Immunodeficiency common variable

REACTIONS (8)
  - Atrial fibrillation [Unknown]
  - COVID-19 [Recovering/Resolving]
  - Sinus disorder [Unknown]
  - Immunoglobulins decreased [Unknown]
  - Bronchitis [Recovering/Resolving]
  - Inappropriate schedule of product administration [Unknown]
  - Asthenia [Unknown]
  - Influenza [Unknown]

NARRATIVE: CASE EVENT DATE: 20200923
